FAERS Safety Report 13243634 (Version 26)
Quarter: 2019Q4

REPORT INFORMATION
  Report Type: Report from Study
  Country: US (occurrence: US)
  Receive Date: 20170216
  Receipt Date: 20191220
  Transmission Date: 20200122
  Serious: Yes (Hospitalization)
  Sender: FDA-Public Use
  Company Number: US-ACTELION-A-US2013-91467

PATIENT
  Age: 56 Year
  Sex: Female
  Weight: 74.83 kg

DRUGS (7)
  1. VELETRI [Suspect]
     Active Substance: EPOPROSTENOL
     Dosage: 31 NG/KG, PER MIN
     Route: 042
  2. VELETRI [Suspect]
     Active Substance: EPOPROSTENOL
     Indication: PULMONARY ARTERIAL HYPERTENSION
     Dosage: 34 NG/KG, PER MIN
     Route: 042
  3. VELETRI [Suspect]
     Active Substance: EPOPROSTENOL
     Dosage: 32 NG/KG, PER MIN
     Route: 042
  4. VELETRI [Suspect]
     Active Substance: EPOPROSTENOL
     Dosage: 29.5 NG/KG, PER MIN
     Route: 042
     Dates: start: 20111115
  5. VELETRI [Suspect]
     Active Substance: EPOPROSTENOL
     Dosage: 33.5 NG/KG, PER MIN
     Route: 042
  6. DILTIAZEM. [Concomitant]
     Active Substance: DILTIAZEM
  7. VELETRI [Suspect]
     Active Substance: EPOPROSTENOL
     Dosage: 32.5 NG/KG, PER MIN
     Route: 042

REACTIONS (49)
  - Arterial haemorrhage [Unknown]
  - Anaemia [Unknown]
  - Catheter management [Unknown]
  - Palpitations [Unknown]
  - Headache [Unknown]
  - Dizziness [Unknown]
  - Ear infection [Unknown]
  - Abdominal hernia [Not Recovered/Not Resolved]
  - Skin laceration [Unknown]
  - Chest pain [Unknown]
  - Device breakage [Unknown]
  - Catheter site erythema [Unknown]
  - Weight decreased [Unknown]
  - Dyspnoea [Unknown]
  - Thrombosis in device [Unknown]
  - Nausea [Recovering/Resolving]
  - Myalgia [Unknown]
  - Rash [Unknown]
  - Product use issue [Recovering/Resolving]
  - Pancreatitis [Unknown]
  - Neck pain [Unknown]
  - Animal scratch [Unknown]
  - Sinusitis [Unknown]
  - Cardiac murmur [Unknown]
  - Unevaluable event [Unknown]
  - Hernia repair [Unknown]
  - Device leakage [Unknown]
  - Constipation [Unknown]
  - Musculoskeletal pain [Unknown]
  - Product dose omission [Unknown]
  - Vascular device infection [Unknown]
  - Catheter site pain [Recovering/Resolving]
  - Dyspnoea exertional [Unknown]
  - Diarrhoea [Recovering/Resolving]
  - Post procedural complication [Unknown]
  - Catheter site discharge [Recovering/Resolving]
  - Skin operation [Unknown]
  - Device alarm issue [Recovered/Resolved]
  - Pain in jaw [Recovering/Resolving]
  - Flushing [Recovering/Resolving]
  - Eye burns [Unknown]
  - Complication associated with device [Unknown]
  - Device malfunction [Unknown]
  - Pallor [Unknown]
  - Life support [Unknown]
  - Infusion site warmth [Unknown]
  - Dyspnoea at rest [Unknown]
  - Device occlusion [Recovered/Resolved]
  - Catheter site haemorrhage [Unknown]

NARRATIVE: CASE EVENT DATE: 20131114
